FAERS Safety Report 7435431-9 (Version None)
Quarter: 2011Q2

REPORT INFORMATION
  Report Type: 
  Country: None (occurrence: None)
  Receive Date: 20110425
  Receipt Date: 20110414
  Transmission Date: 20111010
  Serious: Yes (Hospitalization, Disabling, Other)
  Sender: FDA-Public Use
  Company Number: US-MERCK-1103USA00638

PATIENT
  Age: 51 Year
  Sex: Female
  Weight: 66 kg

DRUGS (3)
  1. BONIVA [Suspect]
     Indication: OSTEOPOROSIS
     Route: 048
     Dates: start: 20070101, end: 20090101
  2. FOSAMAX [Suspect]
     Indication: OSTEOPOROSIS PROPHYLAXIS
     Route: 048
     Dates: start: 19990817, end: 20090101
  3. FOSAMAX [Suspect]
     Indication: OSTEOPENIA
     Route: 048
     Dates: start: 19990817, end: 20090101

REACTIONS (31)
  - FEMUR FRACTURE [None]
  - HYPERTENSION [None]
  - ERYTHEMA [None]
  - DECREASED INTEREST [None]
  - GROIN PAIN [None]
  - BACK PAIN [None]
  - PANCREATITIS [None]
  - ARTHROPATHY [None]
  - COLITIS [None]
  - FIBROMYALGIA [None]
  - RIB FRACTURE [None]
  - CONSTIPATION [None]
  - BLOOD CHOLESTEROL INCREASED [None]
  - MITRAL VALVE PROLAPSE [None]
  - VITAMIN D DEFICIENCY [None]
  - SWELLING [None]
  - HERPES ZOSTER [None]
  - FOOT FRACTURE [None]
  - OSTEOARTHRITIS [None]
  - PERIPROSTHETIC FRACTURE [None]
  - ANXIETY [None]
  - MITRAL VALVE INCOMPETENCE [None]
  - TINNITUS [None]
  - ALOPECIA EFFLUVIUM [None]
  - ANAEMIA POSTOPERATIVE [None]
  - OSTEOPENIA [None]
  - LUNG NEOPLASM [None]
  - INJURY [None]
  - DEPRESSION [None]
  - EMPHYSEMA [None]
  - FALL [None]
